FAERS Safety Report 4461917-5 (Version None)
Quarter: 2004Q3

REPORT INFORMATION
  Report Type: 
  Country: None (occurrence: None)
  Receive Date: 20040929
  Receipt Date: 20031118
  Transmission Date: 20050211
  Serious: No
  Sender: FDA-Public Use
  Company Number: US-GLAXOSMITHKLINE-A0440190A

PATIENT
  Age: 66 Year

DRUGS (7)
  1. SEREVENT [Suspect]
     Indication: ASTHMA
     Dosage: 1PUFF TWICE PER DAY
     Route: 055
     Dates: start: 20031001
  2. ALBUTEROL [Concomitant]
  3. ALUPENT [Concomitant]
  4. ASPIRIN [Concomitant]
  5. LOTREL [Concomitant]
  6. TERAZOSIN HCL [Concomitant]
  7. LIPITOR [Concomitant]

REACTIONS (1)
  - ASTHMA [None]
